FAERS Safety Report 7354510-8 (Version None)
Quarter: 2011Q1

REPORT INFORMATION
  Report Type: 
  Country: None (occurrence: None)
  Receive Date: 20110316
  Receipt Date: 20101216
  Transmission Date: 20110831
  Serious: Yes (Other)
  Sender: FDA-Public Use
  Company Number: US-BAYER-201028640NA

PATIENT
  Sex: Female

DRUGS (7)
  1. ASPIRIN [Concomitant]
     Route: 048
  2. HORMONES NOS [Concomitant]
     Dosage: UNK
     Dates: start: 20020101, end: 20070704
  3. ALLEGRA [Concomitant]
     Indication: HYPERSENSITIVITY
     Dosage: DAILY DOSE 180 MG
     Route: 048
     Dates: end: 20070704
  4. YASMIN [Suspect]
     Indication: CONTRACEPTION
     Route: 048
     Dates: start: 20020801
  5. CELEBREX [Concomitant]
     Route: 048
  6. MULTI-VITAMINS [Concomitant]
     Route: 048
  7. RESTORIL [Concomitant]
     Indication: SLEEP DISORDER THERAPY
     Dosage: DAILY DOSE 14 MG
     Route: 048
     Dates: end: 20070704

REACTIONS (5)
  - GALLBLADDER DISORDER [None]
  - BILIARY COLIC [None]
  - COLITIS ISCHAEMIC [None]
  - CHOLECYSTITIS CHRONIC [None]
  - ABDOMINAL PAIN UPPER [None]
